FAERS Safety Report 10399973 (Version 5)
Quarter: 2015Q2

REPORT INFORMATION
  Report Type: Spontaneous
  Country: US (occurrence: US)
  Receive Date: 20140821
  Receipt Date: 20150612
  Transmission Date: 20150821
  Serious: No
  Sender: FDA-Public Use
  Company Number: US-009507513-1408USA008033

PATIENT
  Sex: Male

DRUGS (1)
  1. PROPECIA [Suspect]
     Active Substance: FINASTERIDE
     Indication: ALOPECIA AREATA
     Dosage: 1 MG, QD
     Route: 048
     Dates: start: 20000615, end: 20090925

REACTIONS (12)
  - Teratospermia [Unknown]
  - Sleep apnoea syndrome [Unknown]
  - Eye infection [Unknown]
  - Semen volume decreased [Unknown]
  - Libido decreased [Not Recovered/Not Resolved]
  - Painful erection [Unknown]
  - Sexual dysfunction [Not Recovered/Not Resolved]
  - Weight decreased [Unknown]
  - Alveoloplasty [Unknown]
  - Peyronie^s disease [Not Recovered/Not Resolved]
  - Erectile dysfunction [Not Recovered/Not Resolved]
  - Ear pain [Not Recovered/Not Resolved]

NARRATIVE: CASE EVENT DATE: 20050425
